FAERS Safety Report 14242563 (Version 1)
Quarter: 2017Q4

REPORT INFORMATION
  Report Type: Spontaneous
  Country: US (occurrence: US)
  Receive Date: 20171201
  Receipt Date: 20171201
  Transmission Date: 20180321
  Serious: No
  Sender: FDA-Public Use
  Company Number: US-PFIZER INC-2017514194

PATIENT
  Sex: Female

DRUGS (1)
  1. IBRANCE [Suspect]
     Active Substance: PALBOCICLIB
     Indication: BREAST CANCER METASTATIC
     Dosage: UNK
     Dates: start: 20170201

REACTIONS (6)
  - Nausea [Unknown]
  - Fatigue [Unknown]
  - Alopecia [Unknown]
  - Ageusia [Unknown]
  - Vomiting [Unknown]
  - Formication [Unknown]

NARRATIVE: CASE EVENT DATE: 2017
